FAERS Safety Report 21802788 (Version 1)
Quarter: 2022Q4

REPORT INFORMATION
  Report Type: Spontaneous
  Country: ES (occurrence: ES)
  Receive Date: 20221231
  Receipt Date: 20221231
  Transmission Date: 20230113
  Serious: Yes (Other)
  Sender: FDA-Public Use
  Company Number: None

PATIENT
  Age: 74 Year
  Sex: Female
  Weight: 44 kg

DRUGS (1)
  1. PROLIA [Suspect]
     Active Substance: DENOSUMAB
     Indication: Osteoporosis
     Dosage: 60 MG EVERY 6 MONTHS
     Route: 058
     Dates: start: 20150501, end: 20211119

REACTIONS (2)
  - Lumbar vertebral fracture [Recovered/Resolved with Sequelae]
  - Rebound effect [Recovered/Resolved with Sequelae]

NARRATIVE: CASE EVENT DATE: 20220501
